FAERS Safety Report 4998563-0 (Version None)
Quarter: 2006Q1

REPORT INFORMATION
  Report Type: 
  Country: None (occurrence: None)
  Receive Date: 20060315
  Receipt Date: 20060127
  Transmission Date: 20060701
  Serious: Yes (Other)
  Sender: FDA-Public Use
  Company Number: 434228

PATIENT
  Sex: Female

DRUGS (2)
  1. BONIVA [Suspect]
     Indication: OSTEOPOROSIS
     Dosage: ORAL
     Route: 048
     Dates: start: 20060105, end: 20060105
  2. BLOOD PRESSURE MEDICATIONS NOS (ANTIHYPERTENSIVE NOS) [Concomitant]

REACTIONS (1)
  - MUSCLE SPASMS [None]
